FAERS Safety Report 22619541 (Version 1)
Quarter: 2023Q2

REPORT INFORMATION
  Report Type: Spontaneous
  Country: FR (occurrence: FR)
  Receive Date: 20230620
  Receipt Date: 20230620
  Transmission Date: 20230721
  Serious: Yes (Hospitalization, Other)
  Sender: FDA-Public Use
  Company Number: FR-GRANULES-FR-2023GRALIT00151

PATIENT
  Age: 38 Year
  Sex: Female

DRUGS (13)
  1. LAMOTRIGINE [Suspect]
     Active Substance: LAMOTRIGINE
     Indication: Antipsychotic therapy
     Route: 065
     Dates: start: 20220608
  2. ARIPIPRAZOLE [Suspect]
     Active Substance: ARIPIPRAZOLE
     Indication: Antipsychotic therapy
     Route: 065
     Dates: start: 20220610
  3. ZOPICLONE [Suspect]
     Active Substance: ZOPICLONE
     Indication: Antipsychotic therapy
     Route: 065
  4. OLANZAPINE [Concomitant]
     Active Substance: OLANZAPINE
     Dosage: PER DAY
     Route: 065
  5. MIRTAZAPINE [Concomitant]
     Active Substance: MIRTAZAPINE
     Dosage: PER DAY
     Route: 065
     Dates: start: 20220610
  6. QUETIAPINE [Concomitant]
     Active Substance: QUETIAPINE
     Route: 065
  7. QUETIAPINE [Concomitant]
     Active Substance: QUETIAPINE
     Route: 065
     Dates: start: 20220422
  8. AMISULPRIDE [Concomitant]
     Active Substance: AMISULPRIDE
     Indication: Antipsychotic therapy
     Dosage: PER DAY
     Route: 065
  9. AMISULPRIDE [Concomitant]
     Active Substance: AMISULPRIDE
     Route: 065
     Dates: start: 20220422
  10. PAROXETINE [Concomitant]
     Active Substance: PAROXETINE
     Indication: Depressive symptom
     Dosage: PER DAY
     Route: 065
     Dates: start: 20220423
  11. PAROXETINE [Concomitant]
     Active Substance: PAROXETINE
     Dosage: PER DAY
     Route: 065
  12. DIAZEPAM [Concomitant]
     Active Substance: DIAZEPAM
     Route: 065
  13. CYAMEMAZINE [Concomitant]
     Active Substance: CYAMEMAZINE
     Route: 065

REACTIONS (9)
  - Hallucination, visual [Recovered/Resolved]
  - Delusion [Recovered/Resolved]
  - Disorganised speech [Recovered/Resolved]
  - Sleep disorder [Recovered/Resolved]
  - Abnormal behaviour [Recovered/Resolved]
  - Confusional state [Recovered/Resolved]
  - Condition aggravated [Recovered/Resolved]
  - Affect lability [Recovered/Resolved]
  - Drug interaction [Recovered/Resolved]
